FAERS Safety Report 7549363-9 (Version None)
Quarter: 2011Q2

REPORT INFORMATION
  Report Type: 
  Country: None (occurrence: None)
  Receive Date: 20110608
  Receipt Date: 20110516
  Transmission Date: 20111010
  Serious: Yes (Hospitalization)
  Sender: FDA-Public Use
  Company Number: DSA_46834_2011

PATIENT
  Age: 29 Year
  Sex: Female

DRUGS (14)
  1. ACYCLOVIR [Suspect]
     Indication: NECROTISING RETINITIS
     Dosage: 10 MG/KG, TID INTRAVENOUS (800 MG.5XDAY, ORAL (400 MG QID)
     Route: 048
  2. HYDROCORTONE [Suspect]
     Indication: RASH MACULAR
     Dosage: 100, 20, 50  MG, INTRAVENOUS
     Route: 042
  3. DEXAMETHASONE [Concomitant]
  4. EFAVIRENZ [Concomitant]
  5. AMOXICILLIN [Suspect]
     Indication: LOWER RESPIRATORY TRACT INFECTION
     Dosage: DF
  6. PREDNISOLONE [Concomitant]
  7. DAPSONE [Concomitant]
  8. LAMIVUDINE [Concomitant]
  9. FAMCICLOVIR [Suspect]
     Indication: PRODUCT USED FOR UNKNOWN INDICATION
     Dosage: DF ORAL
     Route: 048
  10. TENOFOVIR DISOPROXIL FUMARATE [Concomitant]
  11. CHLORPHENIRAMINE MALEATE [Concomitant]
  12. ATRIPLA [Concomitant]
  13. GANCICLOVIR [Concomitant]
  14. FLUCONAZOLE [Concomitant]

REACTIONS (7)
  - SKIN DISORDER [None]
  - ANGIOEDEMA [None]
  - RASH MACULO-PAPULAR [None]
  - VISION BLURRED [None]
  - CD4 LYMPHOCYTES DECREASED [None]
  - DRUG HYPERSENSITIVITY [None]
  - CHEST DISCOMFORT [None]
